FAERS Safety Report 5400072-1 (Version None)
Quarter: 2007Q3

REPORT INFORMATION
  Report Type: 
  Country: None (occurrence: None)
  Receive Date: 20070730
  Receipt Date: 20070720
  Transmission Date: 20080115
  Serious: Yes (Other)
  Sender: FDA-Public Use
  Company Number: HQWYE172723JUL07

PATIENT
  Sex: Female
  Weight: 72.64 kg

DRUGS (1)
  1. EFFEXOR XR [Suspect]
     Indication: DEPRESSION
     Route: 048
     Dates: start: 20020101

REACTIONS (2)
  - HIGH DENSITY LIPOPROTEIN DECREASED [None]
  - HYPERLIPIDAEMIA [None]
